FAERS Safety Report 19065192 (Version 6)
Quarter: 2021Q3

REPORT INFORMATION
  Report Type: Report from Study
  Country: US (occurrence: US)
  Receive Date: 20210327
  Receipt Date: 20210908
  Transmission Date: 20211014
  Serious: No
  Sender: FDA-Public Use
  Company Number: NVSC2021US063963

PATIENT
  Sex: Female

DRUGS (2)
  1. ENTRESTO [Suspect]
     Active Substance: SACUBITRIL\VALSARTAN
     Indication: PRODUCT USED FOR UNKNOWN INDICATION
     Dosage: 1 DF, BID  (EACH 24/26 MG)
     Route: 048
     Dates: start: 20210309
  2. ENTRESTO [Suspect]
     Active Substance: SACUBITRIL\VALSARTAN
     Dosage: UNK
     Route: 065
     Dates: start: 202107

REACTIONS (4)
  - Reflux laryngitis [Unknown]
  - Cough [Unknown]
  - Hypersensitivity [Unknown]
  - Weight abnormal [Unknown]
